FAERS Safety Report 7568291-6 (Version None)
Quarter: 2011Q2

REPORT INFORMATION
  Report Type: 
  Country: None (occurrence: None)
  Receive Date: 20110623
  Receipt Date: 20110616
  Transmission Date: 20111010
  Serious: Yes (Other)
  Sender: FDA-Public Use
  Company Number: US-ABBOTT-11P-163-0732863-00

PATIENT
  Sex: Male

DRUGS (7)
  1. REGLAN [Suspect]
     Indication: PRODUCT USED FOR UNKNOWN INDICATION
  2. CHANTIX [Suspect]
     Indication: PRODUCT USED FOR UNKNOWN INDICATION
     Route: 048
  3. VICODIN [Suspect]
     Indication: PRODUCT USED FOR UNKNOWN INDICATION
  4. AMBIEN [Suspect]
     Indication: PRODUCT USED FOR UNKNOWN INDICATION
  5. HEART MEDICATIONS [Suspect]
     Indication: PRODUCT USED FOR UNKNOWN INDICATION
  6. PRILOSEC [Suspect]
     Indication: PRODUCT USED FOR UNKNOWN INDICATION
  7. BLOOD THINNER [Suspect]
     Indication: PRODUCT USED FOR UNKNOWN INDICATION

REACTIONS (2)
  - ABDOMINAL DISCOMFORT [None]
  - RENAL FAILURE CHRONIC [None]
